FAERS Safety Report 6252696-X (Version None)
Quarter: 2009Q2

REPORT INFORMATION
  Report Type: 
  Country: None (occurrence: None)
  Receive Date: 20090629
  Receipt Date: 20090629
  Transmission Date: 20091009
  Serious: Yes (Life-Threatening, Hospitalization)
  Sender: FDA-Public Use
  Company Number: None

PATIENT
  Age: 77 Year
  Sex: Male
  Weight: 84.4 kg

DRUGS (1)
  1. IBUPROFEN [Suspect]
     Indication: PAIN
     Dosage: 600MG TID PO
     Route: 048
     Dates: start: 20050614, end: 20090113

REACTIONS (2)
  - DRUG ADMINISTRATION ERROR [None]
  - GASTROINTESTINAL HAEMORRHAGE [None]
